FAERS Safety Report 15344029 (Version 1)
Quarter: 2018Q4

REPORT INFORMATION
  Report Type: Spontaneous
  Country: BR (occurrence: BR)
  Receive Date: 20180903
  Receipt Date: 20180903
  Transmission Date: 20190204
  Serious: Yes (Hospitalization)
  Sender: FDA-Public Use
  Company Number: PHHY2018BR083518

PATIENT
  Age: 12 Year
  Sex: Male
  Weight: 82 kg

DRUGS (5)
  1. RITALIN LA [Suspect]
     Active Substance: METHYLPHENIDATE HYDROCHLORIDE
     Indication: ATTENTION DEFICIT/HYPERACTIVITY DISORDER
     Dosage: UNK
     Route: 065
     Dates: start: 2014
  2. RITALINA [Suspect]
     Active Substance: METHYLPHENIDATE HYDROCHLORIDE
     Indication: ATTENTION DEFICIT/HYPERACTIVITY DISORDER
     Dosage: 2 DF, QD
     Route: 048
  3. LEVOZINE (LEVOFLOXACIN HEMILHYDRATE) [Suspect]
     Active Substance: LEVOFLOXACIN
     Indication: PRODUCT USED FOR UNKNOWN INDICATION
     Route: 065
  4. OMEPRAZOLE. [Concomitant]
     Active Substance: OMEPRAZOLE
     Indication: PRODUCT USED FOR UNKNOWN INDICATION
     Route: 065
  5. AMATO [Suspect]
     Active Substance: TOPIRAMATE
     Indication: PRODUCT USED FOR UNKNOWN INDICATION
     Route: 065

REACTIONS (6)
  - Retching [Unknown]
  - Disturbance in attention [Not Recovered/Not Resolved]
  - Dyspnoea [Recovered/Resolved]
  - Electrocardiogram abnormal [Unknown]
  - Somnolence [Not Recovered/Not Resolved]
  - Abdominal pain upper [Unknown]

NARRATIVE: CASE EVENT DATE: 201806
